FAERS Safety Report 19408595 (Version 1)
Quarter: 2021Q2

REPORT INFORMATION
  Report Type: Not Available
  Country: None (occurrence: None)
  Receive Date: 20210612
  Receipt Date: 20210612
  Transmission Date: 20210717
  Serious: No
  Sender: FDA-Public Use
  Company Number: US-AKORN-167572

PATIENT
  Age: 65 Year
  Sex: Female

DRUGS (1)
  1. COSOPT PF [Suspect]
     Active Substance: DORZOLAMIDE HYDROCHLORIDE\TIMOLOL MALEATE

REACTIONS (3)
  - Vision blurred [Recovered/Resolved]
  - Ocular hyperaemia [Recovered/Resolved]
  - Eye irritation [Recovered/Resolved]
